FAERS Safety Report 24849244 (Version 2)
Quarter: 2025Q1

REPORT INFORMATION
  Report Type: Spontaneous
  Country: GB (occurrence: GB)
  Receive Date: 20250116
  Receipt Date: 20250123
  Transmission Date: 20250408
  Serious: Yes (Other)
  Sender: ACCORD
  Company Number: None

PATIENT
  Age: 54 Year
  Sex: Female

DRUGS (2)
  1. AMITRIPTYLINE [Suspect]
     Active Substance: AMITRIPTYLINE
     Indication: Neuralgia
  2. PREDNISOLONE [Suspect]
     Active Substance: PREDNISOLONE
     Indication: Product used for unknown indication

REACTIONS (2)
  - Deafness transitory [Not Recovered/Not Resolved]
  - Sinus congestion [Unknown]
